FAERS Safety Report 9448630 (Version 2)
Quarter: 2013Q4

REPORT INFORMATION
  Report Type: Spontaneous
  Country: BR (occurrence: BR)
  Receive Date: 20130808
  Receipt Date: 20131018
  Transmission Date: 20140711
  Serious: Yes (Hospitalization)
  Sender: FDA-Public Use
  Company Number: BR-ASTRAZENECA-2013SE60888

PATIENT
  Age: 63 Year
  Sex: Male
  Weight: 95 kg

DRUGS (5)
  1. ATACAND HCT [Suspect]
     Dosage: 8/12.5 MG DAILY
     Route: 048
     Dates: start: 2007
  2. BRILINTA [Suspect]
     Route: 048
     Dates: start: 20130731
  3. ATORVASTATIN [Concomitant]
     Indication: BLOOD CHOLESTEROL ABNORMAL
     Dates: start: 2007, end: 20130731
  4. ATORVASTATIN [Concomitant]
     Indication: BLOOD CHOLESTEROL ABNORMAL
     Dates: start: 20130801
  5. UNKNOWN [Concomitant]
     Indication: GASTRIC DISORDER

REACTIONS (4)
  - Coronary artery occlusion [Recovered/Resolved]
  - Heart rate irregular [Recovered/Resolved]
  - Gout [Not Recovered/Not Resolved]
  - Somnolence [Recovered/Resolved]
